FAERS Safety Report 12521688 (Version 4)
Quarter: 2020Q3

REPORT INFORMATION
  Report Type: Report from Study
  Country: BE (occurrence: BE)
  Receive Date: 20160701
  Receipt Date: 20200828
  Transmission Date: 20201102
  Serious: Yes (Death, Hospitalization, Other)
  Sender: FDA-Public Use
  Company Number: BE-CELGENEUS-BEL-2016012416

PATIENT
  Age: 62 Year
  Sex: Female
  Weight: 55 kg

DRUGS (19)
  1. BISOPROLOL [Concomitant]
     Active Substance: BISOPROLOL
     Indication: HYPERTENSION
     Dosage: 1/2 TABLET
     Route: 048
     Dates: start: 2008
  2. DEANXIT [Concomitant]
     Active Substance: FLUPENTIXOL DIHYDROCHLORIDE\MELITRACEN HYDROCHLORIDE
     Indication: PRODUCT USED FOR UNKNOWN INDICATION
     Dosage: 10/0.5 MILLIGRAM
     Route: 048
     Dates: start: 20150831
  3. PROPYLENE GLYCOL [Concomitant]
     Active Substance: PROPYLENE GLYCOL
     Indication: PRODUCT USED FOR UNKNOWN INDICATION
     Route: 065
     Dates: start: 20141003
  4. REVLIMID [Suspect]
     Active Substance: LENALIDOMIDE
     Indication: PLASMA CELL MYELOMA
     Dosage: 25 MILLIGRAM
     Route: 048
     Dates: start: 20141003, end: 20151224
  5. REVLIMID [Suspect]
     Active Substance: LENALIDOMIDE
     Dosage: 25 MILLIGRAM
     Route: 048
     Dates: end: 20160126
  6. DEXAMETHASONE. [Suspect]
     Active Substance: DEXAMETHASONE
     Indication: ADVERSE EVENT
     Route: 065
     Dates: start: 20141023, end: 20160126
  7. DAFLAGAN [Concomitant]
     Indication: BACK PAIN
     Route: 048
     Dates: start: 201409
  8. DAFLAGAN [Concomitant]
     Dosage: 500/30 MILLIGRAM
     Route: 048
     Dates: start: 201409
  9. ZOMETA [Concomitant]
     Active Substance: ZOLEDRONIC ACID
     Indication: OSTEOPOROSIS
     Route: 041
     Dates: start: 20140918
  10. ASAFLOW [Concomitant]
     Active Substance: ASPIRIN
     Indication: THROMBOSIS
     Dosage: 80 MILLIGRAM
     Route: 048
     Dates: start: 20141003
  11. XYLOCAINE [Concomitant]
     Active Substance: LIDOCAINE HYDROCHLORIDE
     Indication: THROMBOSIS
     Route: 065
     Dates: start: 20141003
  12. CARBAPENTINE [Concomitant]
     Indication: PRODUCT USED FOR UNKNOWN INDICATION
     Dosage: 300 MILLIGRAM
     Route: 048
     Dates: start: 20150903
  13. DAFALGAN CODEINE [Concomitant]
     Active Substance: ACETAMINOPHEN\CODEINE PHOSPHATE
     Indication: BACK PAIN
     Dosage: 500/30MG
     Route: 048
     Dates: start: 201409
  14. DEXAMETHASONE. [Suspect]
     Active Substance: DEXAMETHASONE
     Indication: PLASMA CELL MYELOMA
     Route: 048
     Dates: start: 20141003, end: 20151127
  15. HYDROXYBENZOATE [Concomitant]
     Indication: PRODUCT USED FOR UNKNOWN INDICATION
     Route: 065
     Dates: start: 20141003
  16. PANTOPRAZOLE [Concomitant]
     Active Substance: PANTOPRAZOLE
     Indication: GASTROOESOPHAGEAL REFLUX DISEASE
     Dosage: 20 MILLIGRAM
     Route: 048
     Dates: start: 20150904
  17. PANADOL CODEINE [Concomitant]
     Indication: BACK PAIN
     Route: 048
     Dates: start: 201409
  18. METATOP [Concomitant]
     Active Substance: LORMETAZEPAM
     Indication: INSOMNIA
     Dosage: 1 MILLIGRAM
     Route: 048
     Dates: start: 2008
  19. GABAPENTINE [Concomitant]
     Active Substance: GABAPENTIN
     Indication: ORAL DISCOMFORT
     Dosage: 300 MILLIGRAM
     Route: 048
     Dates: start: 20150907

REACTIONS (2)
  - Adenocarcinoma pancreas [Fatal]
  - Pulmonary embolism [Recovered/Resolved]

NARRATIVE: CASE EVENT DATE: 20160112
